FAERS Safety Report 24908279 (Version 1)
Quarter: 2025Q1

REPORT INFORMATION
  Report Type: Spontaneous
  Country: TR (occurrence: TR)
  Receive Date: 20250131
  Receipt Date: 20250131
  Transmission Date: 20250408
  Serious: Yes (Other)
  Sender: INVENTIA HEALTHCARE PRIVATE LIMITED
  Company Number: TR-Inventia-000779

PATIENT
  Age: 62 Year
  Sex: Female

DRUGS (1)
  1. DULOXETINE [Suspect]
     Active Substance: DULOXETINE
     Indication: Depressive symptom

REACTIONS (2)
  - Gastritis erosive [Recovered/Resolved]
  - Gastrooesophageal reflux disease [Recovered/Resolved]
